FAERS Safety Report 9632339 (Version 2)
Quarter: 2013Q4

REPORT INFORMATION
  Report Type: Spontaneous
  Country: US (occurrence: ZA)
  Receive Date: 20131018
  Receipt Date: 20131024
  Transmission Date: 20140711
  Serious: Yes (Hospitalization, Other)
  Sender: FDA-Public Use
  Company Number: ZA-PFIZER INC-2013297643

PATIENT
  Age: 49 Year
  Sex: Female

DRUGS (5)
  1. FLUOROURACIL [Suspect]
     Indication: COLON CANCER STAGE II
     Dosage: 750 MG, WEEKLY
     Route: 042
  2. FLUOROURACIL [Suspect]
     Route: 048
  3. FLUOROURACIL [Suspect]
     Dosage: OVER 4 HOURS
     Route: 041
  4. VINCRISTINE [Concomitant]
     Indication: COLON CANCER STAGE II
     Dosage: 1.5 MG, EVERY 3 WEEKS
     Route: 042
  5. CCNU [Concomitant]
     Indication: COLON CANCER STAGE II
     Dosage: 200 MG EVERY 6 WEEKS
     Route: 048

REACTIONS (1)
  - Cardiotoxicity [Recovered/Resolved]
